FAERS Safety Report 16023340 (Version 1)
Quarter: 2019Q1

REPORT INFORMATION
  Report Type: Report from Study
  Country: BR (occurrence: BR)
  Receive Date: 20190301
  Receipt Date: 20190301
  Transmission Date: 20190418
  Serious: Yes (Other)
  Sender: FDA-Public Use
  Company Number: BR-JNJFOC-20181214035

PATIENT
  Age: 32 Year
  Sex: Female

DRUGS (7)
  1. TECNOMET [Concomitant]
     Active Substance: METHOTREXATE
     Indication: ANKYLOSING SPONDYLITIS
     Route: 048
  2. REVANGE [Concomitant]
     Route: 065
  3. DPREV [Concomitant]
     Route: 065
  4. INFLIXIMAB, RECOMBINANT [Suspect]
     Active Substance: INFLIXIMAB
     Indication: ANKYLOSING SPONDYLITIS
     Route: 042
     Dates: start: 20181004
  5. CALCIUM [Concomitant]
     Active Substance: CALCIUM
     Indication: ANKYLOSING SPONDYLITIS
     Route: 048
  6. OMEGA III [Concomitant]
     Route: 065
  7. ARCOXIA [Concomitant]
     Active Substance: ETORICOXIB
     Route: 065

REACTIONS (4)
  - Product dose omission [Unknown]
  - Fall [Unknown]
  - Ankylosing spondylitis [Not Recovered/Not Resolved]
  - Intervertebral disc protrusion [Not Recovered/Not Resolved]

NARRATIVE: CASE EVENT DATE: 201811
